FAERS Safety Report 15229195 (Version 8)
Quarter: 2024Q4

REPORT INFORMATION
  Report Type: Report from Study
  Country: CA (occurrence: CA)
  Receive Date: 20180801
  Receipt Date: 20241202
  Transmission Date: 20250114
  Serious: Yes (Hospitalization, Other)
  Sender: TAKEDA
  Company Number: CA-TAKEDA-2018TUS023560

PATIENT
  Age: 53 Year
  Sex: Male

DRUGS (6)
  1. VEDOLIZUMAB [Suspect]
     Active Substance: VEDOLIZUMAB
     Indication: Crohn^s disease
     Dosage: 300 MILLIGRAM
  2. VEDOLIZUMAB [Suspect]
     Active Substance: VEDOLIZUMAB
     Dosage: 300 MILLIGRAM
  3. VEDOLIZUMAB [Suspect]
     Active Substance: VEDOLIZUMAB
     Dosage: 300 MILLIGRAM
  4. VEDOLIZUMAB [Suspect]
     Active Substance: VEDOLIZUMAB
     Dosage: 300 MILLIGRAM
  5. VEDOLIZUMAB [Suspect]
     Active Substance: VEDOLIZUMAB
     Dosage: 300 MILLIGRAM
  6. EFINACONAZOLE [Concomitant]
     Active Substance: EFINACONAZOLE
     Dosage: UNK UNK, QD

REACTIONS (4)
  - Intestinal obstruction [Recovering/Resolving]
  - Crohn^s disease [Recovering/Resolving]
  - Intestinal fistula [Unknown]
  - Abscess intestinal [Unknown]

NARRATIVE: CASE EVENT DATE: 20180724
